FAERS Safety Report 6102585-6 (Version None)
Quarter: 2009Q1

REPORT INFORMATION
  Report Type: 
  Country: None (occurrence: None)
  Receive Date: 20090304
  Receipt Date: 20080909
  Transmission Date: 20090719
  Serious: No
  Sender: FDA-Public Use
  Company Number: A0746583A

PATIENT
  Age: 76 Year
  Sex: Female

DRUGS (9)
  1. REQUIP [Suspect]
     Indication: RESTLESS LEGS SYNDROME
     Dosage: .25MG PER DAY
     Route: 048
     Dates: start: 20080904
  2. SYNTHROID [Concomitant]
  3. ESTRADIOL [Concomitant]
  4. ALLEGRA D 24 HOUR [Concomitant]
  5. ZITHROMAX [Concomitant]
     Dates: end: 20080907
  6. MIACALCIN [Concomitant]
  7. VITAMINS [Concomitant]
  8. GLUCOSAMINE [Concomitant]
  9. GRAPE SEED OIL [Concomitant]

REACTIONS (2)
  - DRUG INEFFECTIVE [None]
  - SOMNOLENCE [None]
